FAERS Safety Report 9423940 (Version 4)
Quarter: 2014Q1

REPORT INFORMATION
  Report Type: Spontaneous
  Country: US (occurrence: US)
  Receive Date: 20130729
  Receipt Date: 20140211
  Transmission Date: 20141002
  Serious: No
  Sender: FDA-Public Use
  Company Number: US-B.I. PHARMACEUTICALS,INC./RIDGEFIELD-2013-BI-21705BP

PATIENT
  Age: 67 Year
  Sex: Male
  Weight: 81.64 kg

DRUGS (20)
  1. COMBIVENT [Suspect]
     Indication: ASTHMA
     Dosage: STRENGTH: 20 MCG / 100 MCG; DAILY DOSE: 160 MCG/800 MCG
     Route: 055
     Dates: start: 201306
  2. FORMOTEROL FUMARATE [Concomitant]
     Indication: ASTHMA
     Route: 055
  3. ASMANEX [Concomitant]
     Indication: ASTHMA
     Route: 055
  4. ZAFIRLUKAST [Concomitant]
     Indication: ASTHMA
     Route: 048
  5. GUAIFENESIN [Concomitant]
     Indication: INCREASED UPPER AIRWAY SECRETION
     Route: 048
  6. MORPHINE SULPHATE [Concomitant]
     Indication: HIP SURGERY
     Route: 048
  7. MORPHINE SULPHATE [Concomitant]
     Indication: MUSCULAR WEAKNESS
  8. OXYCODONE [Concomitant]
     Indication: HIP SURGERY
     Route: 048
  9. OXYCODONE [Concomitant]
     Indication: MUSCULAR WEAKNESS
  10. OMEPRAZOLE [Concomitant]
     Indication: GASTROOESOPHAGEAL REFLUX DISEASE
     Route: 048
  11. LORAZEPAM [Concomitant]
     Indication: ANXIETY
     Route: 048
  12. LORATADINE [Concomitant]
     Indication: SINUS DISORDER
     Route: 048
  13. ETODOLAC [Concomitant]
     Indication: HIP SURGERY
     Route: 048
  14. ETODOLAC [Concomitant]
     Indication: MUSCULAR WEAKNESS
  15. MULTIVITAMINS [Concomitant]
     Indication: SUPPLEMENTATION THERAPY
     Route: 048
  16. TERAZOSIN [Concomitant]
     Indication: PROSTATOMEGALY
     Route: 048
  17. TYLENOL [Concomitant]
     Indication: HEADACHE
     Route: 048
  18. ALBUTEROL [Concomitant]
     Indication: LUNG DISORDER
     Route: 055
  19. PROAIR [Concomitant]
     Indication: ASTHMA
     Route: 055
  20. TRAZODONE [Concomitant]
     Indication: ANTIDEPRESSANT THERAPY
     Route: 048

REACTIONS (5)
  - Off label use [Not Recovered/Not Resolved]
  - Drug prescribing error [Not Recovered/Not Resolved]
  - Product quality issue [Unknown]
  - Drug ineffective [Not Recovered/Not Resolved]
  - Drug effect delayed [Not Recovered/Not Resolved]
